FAERS Safety Report 5727719-4 (Version None)
Quarter: 2008Q2

REPORT INFORMATION
  Report Type: 
  Country: None (occurrence: None)
  Receive Date: 20080505
  Receipt Date: 20080423
  Transmission Date: 20081010
  Serious: Yes (Other)
  Sender: FDA-Public Use
  Company Number: CH-ROCHE-558788

PATIENT
  Sex: Female
  Weight: 60 kg

DRUGS (6)
  1. BONIVA [Suspect]
     Indication: OSTEOPOROSIS
     Dosage: FORM: VIAL. DOSAGE REGIMEN: ^3 MG/TOTAL^
     Route: 042
     Dates: start: 20080402, end: 20080402
  2. ATROVENT [Concomitant]
     Dosage: OTHER INDICATION: COPD
     Route: 055
     Dates: start: 20080201
  3. SYMBICORT [Concomitant]
     Dosage: OTHER INDICATION: COPD
     Route: 055
     Dates: start: 20070401
  4. SYMBICORT [Concomitant]
     Dosage: OTHER INDICATION: COPD
     Route: 055
     Dates: start: 20070401
  5. DAFALGAN [Concomitant]
     Indication: PAIN
     Dosage: TAKEN WHEN NEEDED
     Route: 048
  6. CITALOPRAM HYDROBROMIDE [Concomitant]
     Indication: DEPRESSED MOOD
     Route: 048
     Dates: start: 20071001

REACTIONS (4)
  - ARTHRALGIA [None]
  - DYSPNOEA [None]
  - MUSCULOSKELETAL CHEST PAIN [None]
  - RASH [None]
